FAERS Safety Report 5626955-5 (Version None)
Quarter: 2008Q1

REPORT INFORMATION
  Report Type: 
  Country: None (occurrence: None)
  Receive Date: 20080212
  Receipt Date: 20080205
  Transmission Date: 20080703
  Serious: Yes (Hospitalization)
  Sender: FDA-Public Use
  Company Number: WAES 0801AUS00197

PATIENT
  Age: 50 Year
  Sex: Male

DRUGS (4)
  1. TAB RALTEGRAVIR POTASSIUM [Suspect]
     Indication: HIV INFECTION
     Dosage: 400 MG/BID, PO
     Route: 048
     Dates: start: 20071128
  2. ATAZANAVIR SULFATE [Suspect]
     Indication: HIV INFECTION
     Dosage: 400 MG/DAILY  PO
     Route: 048
     Dates: start: 20071128
  3. TENOFOVIR [Suspect]
     Indication: HIV INFECTION
     Dosage: 300 MG/DAILY   PO
     Route: 048
     Dates: start: 20060214
  4. LAMIVUDINE [Suspect]
     Indication: HIV INFECTION
     Dosage: 300 MG/DAILY  PO
     Route: 048
     Dates: start: 20071128

REACTIONS (4)
  - BLOOD URINE [None]
  - DEHYDRATION [None]
  - DIABETES MELLITUS [None]
  - TACHYCARDIA [None]
